FAERS Safety Report 6294354-1 (Version None)
Quarter: 2009Q3

REPORT INFORMATION
  Report Type: 
  Country: None (occurrence: None)
  Receive Date: 20090803
  Receipt Date: 20090721
  Transmission Date: 20100115
  Serious: Yes (Other)
  Sender: FDA-Public Use
  Company Number: US-PFIZER INC-2009245429

PATIENT
  Sex: Female
  Weight: 21 kg

DRUGS (2)
  1. SOLU-MEDROL [Suspect]
     Indication: HYPERSENSITIVITY
     Dosage: UNK
     Dates: start: 20090713
  2. BENADRYL [Concomitant]

REACTIONS (2)
  - OVERDOSE [None]
  - PAIN IN EXTREMITY [None]
